FAERS Safety Report 20596980 (Version 2)
Quarter: 2022Q2

REPORT INFORMATION
  Report Type: Other
  Country: NL (occurrence: None)
  Receive Date: 20220315
  Receipt Date: 20220603
  Transmission Date: 20220721
  Serious: Yes (Other)
  Sender: FDA-Public Use
  Company Number: NL-ROCHE-3045922

PATIENT
  Age: 28 Year
  Sex: Female

DRUGS (7)
  1. EMICIZUMAB [Suspect]
     Active Substance: EMICIZUMAB
     Indication: Von Willebrand^s disease
     Dosage: LOADING DOSE OF 6MG/KG ON DAY 1
     Route: 065
  2. EMICIZUMAB [Suspect]
     Active Substance: EMICIZUMAB
     Dosage: ON DAY 2
     Route: 065
  3. EMICIZUMAB [Suspect]
     Active Substance: EMICIZUMAB
     Dosage: SECOND WEEK ONWARDS
     Route: 065
  4. VON WILLEBRAND FACTOR HUMAN [Suspect]
     Active Substance: VON WILLEBRAND FACTOR HUMAN
     Indication: Von Willebrand^s disease
     Route: 042
  5. PREDNISOLONE [Concomitant]
     Active Substance: PREDNISOLONE
     Indication: Von Willebrand^s disease
  6. CLEMASTINE [Concomitant]
     Active Substance: CLEMASTINE
     Indication: Von Willebrand^s disease
  7. HEPARIN [Concomitant]
     Active Substance: HEPARIN SODIUM
     Indication: Von Willebrand^s disease

REACTIONS (3)
  - Pulmonary embolism [Unknown]
  - Pelvic venous thrombosis [Unknown]
  - Off label use [Unknown]
